FAERS Safety Report 7253482-4 (Version None)
Quarter: 2011Q1

REPORT INFORMATION
  Report Type: 
  Country: None (occurrence: None)
  Receive Date: 20110129
  Receipt Date: 20100309
  Transmission Date: 20110831
  Serious: No
  Sender: FDA-Public Use
  Company Number: US-ABBOTT-10P-163-0626417-00

PATIENT
  Sex: Male
  Weight: 90.8 kg

DRUGS (3)
  1. AMBIEN [Concomitant]
     Indication: INSOMNIA
  2. HUMIRA [Suspect]
     Indication: CROHN'S DISEASE
     Dates: start: 20091030, end: 20100124
  3. LEXAPRO [Concomitant]
     Indication: STRESS

REACTIONS (6)
  - PYREXIA [None]
  - HYPERHIDROSIS [None]
  - OCULAR HYPERAEMIA [None]
  - THROAT TIGHTNESS [None]
  - OROPHARYNGEAL PAIN [None]
  - DYSPHAGIA [None]
